FAERS Safety Report 4474192-2 (Version None)
Quarter: 2004Q4

REPORT INFORMATION
  Report Type: 
  Country: None (occurrence: None)
  Receive Date: 20041008
  Receipt Date: 20040930
  Transmission Date: 20050328
  Serious: Yes (Death)
  Sender: FDA-Public Use
  Company Number: 2004UW16445

PATIENT
  Age: 40 Year
  Sex: Male
  Weight: 122.4712 kg

DRUGS (15)
  1. SEROQUEL [Suspect]
     Indication: ANXIETY
     Dosage: 25 MG TID PO
     Route: 048
     Dates: start: 20040319, end: 20040330
  2. SEROQUEL [Suspect]
     Indication: HALLUCINATION
     Dosage: 25 MG TID PO
     Route: 048
     Dates: start: 20040319, end: 20040330
  3. SEROQUEL [Suspect]
     Indication: SCHIZOPHRENIA
     Dosage: 25 MG TID PO
     Route: 048
     Dates: start: 20040319, end: 20040330
  4. SEROQUEL [Suspect]
     Indication: ANXIETY
     Dosage: 600 MG QD PO
     Route: 048
     Dates: start: 20040331, end: 20040610
  5. SEROQUEL [Suspect]
     Indication: HALLUCINATION
     Dosage: 600 MG QD PO
     Route: 048
     Dates: start: 20040331, end: 20040610
  6. SEROQUEL [Suspect]
     Indication: SCHIZOPHRENIA
     Dosage: 600 MG QD PO
     Route: 048
     Dates: start: 20040331, end: 20040610
  7. SEROQUEL [Suspect]
     Indication: ANXIETY
     Dosage: 800 MG QD PO
     Route: 048
     Dates: start: 20040611
  8. SEROQUEL [Suspect]
     Indication: HALLUCINATION
     Dosage: 800 MG QD PO
     Route: 048
     Dates: start: 20040611
  9. SEROQUEL [Suspect]
     Indication: SCHIZOPHRENIA
     Dosage: 800 MG QD PO
     Route: 048
     Dates: start: 20040611
  10. ABILIFY [Concomitant]
  11. DOSTINEX [Concomitant]
  12. LISINOPRIL AND HYDROCHLOROTHIAZIDE [Concomitant]
  13. ACIPHEX [Concomitant]
  14. ANDROGEL [Concomitant]
  15. TRAZODONE HCL [Concomitant]

REACTIONS (2)
  - CARDIAC ARREST [None]
  - HYPERTHERMIA [None]
